FAERS Safety Report 21133776 (Version 3)
Quarter: 2022Q3

REPORT INFORMATION
  Report Type: Report from Study
  Country: GR (occurrence: GR)
  Receive Date: 20220726
  Receipt Date: 20220822
  Transmission Date: 20221026
  Serious: Yes (Death, Hospitalization, Other)
  Sender: FDA-Public Use
  Company Number: GR-3018-2022-20-214-29000003

PATIENT
  Age: 79 Year
  Sex: Female
  Weight: 66 kg

DRUGS (6)
  1. BEMPEGALDESLEUKIN [Suspect]
     Active Substance: BEMPEGALDESLEUKIN
     Indication: Malignant melanoma
     Dosage: 0.006 MG/KG OR 0.4 MG?MOST RECENT DOSE: 10-MAR-2022
     Route: 042
     Dates: start: 20220217, end: 20220310
  2. ZOLPIDEM TARTRATE [Concomitant]
     Active Substance: ZOLPIDEM TARTRATE
     Indication: Anxiety
     Route: 048
     Dates: start: 2020
  3. SERTRALINE HYDROCHLORIDE [Concomitant]
     Active Substance: SERTRALINE HYDROCHLORIDE
     Indication: Depression
     Route: 048
     Dates: start: 2020
  4. MANTOMED [Concomitant]
     Indication: Memory impairment
     Route: 048
     Dates: start: 2020
  5. SOTOVASTIN [Concomitant]
     Indication: Hypercholesterolaemia
     Route: 048
     Dates: start: 2017
  6. BISOPROLOL FUMARATE\PERINDOPRIL ARGININE [Concomitant]
     Active Substance: BISOPROLOL FUMARATE\PERINDOPRIL ARGININE
     Indication: Hypertension
     Route: 048
     Dates: start: 2019

REACTIONS (2)
  - Myopathy [Not Recovered/Not Resolved]
  - Septic shock [Fatal]

NARRATIVE: CASE EVENT DATE: 20220311
